FAERS Safety Report 13344032 (Version 1)
Quarter: 2017Q1

REPORT INFORMATION
  Report Type: Spontaneous
  Country: US (occurrence: US)
  Receive Date: 20170316
  Receipt Date: 20170316
  Transmission Date: 20170428
  Serious: No
  Sender: FDA-Public Use
  Company Number: US-ELI_LILLY_AND_COMPANY-US201607006271

PATIENT
  Sex: Male

DRUGS (5)
  1. CYMBALTA [Suspect]
     Active Substance: DULOXETINE HYDROCHLORIDE
     Dosage: 30 MG, QD
     Route: 048
  2. CYMBALTA [Suspect]
     Active Substance: DULOXETINE HYDROCHLORIDE
     Dosage: 60 MG, QD
     Route: 048
     Dates: start: 201406
  3. CYMBALTA [Suspect]
     Active Substance: DULOXETINE HYDROCHLORIDE
     Indication: DEPRESSION
     Dosage: 30 MG, QD
     Route: 048
     Dates: start: 201405
  4. CYMBALTA [Suspect]
     Active Substance: DULOXETINE HYDROCHLORIDE
     Dosage: 60 MG, QD
     Route: 048
  5. CYMBALTA [Suspect]
     Active Substance: DULOXETINE HYDROCHLORIDE
     Dosage: 90 MG, QD
     Route: 048

REACTIONS (20)
  - Musculoskeletal chest pain [Unknown]
  - Fatigue [Unknown]
  - Somnolence [Unknown]
  - Dysphoria [Unknown]
  - Hypothyroidism [Unknown]
  - Drug withdrawal syndrome [Unknown]
  - Lethargy [Unknown]
  - High density lipoprotein decreased [Unknown]
  - Diastasis recti abdominis [Unknown]
  - Insomnia [Unknown]
  - Vomiting [Unknown]
  - Headache [Unknown]
  - Hyperlipidaemia [Unknown]
  - Gastrooesophageal reflux disease [Unknown]
  - Paraesthesia [Unknown]
  - Tremor [Unknown]
  - Erectile dysfunction [Unknown]
  - Hypomania [Unknown]
  - Anxiety [Unknown]
  - Nausea [Unknown]
